FAERS Safety Report 9998247 (Version 3)
Quarter: 2014Q2

REPORT INFORMATION
  Report Type: Report from Study
  Country: DE (occurrence: DE)
  Receive Date: 20140311
  Receipt Date: 20140505
  Transmission Date: 20141212
  Serious: Yes (Hospitalization)
  Sender: FDA-Public Use
  Company Number: DE-ABBVIE-14P-062-1208932-00

PATIENT
  Age: 45 Year
  Sex: Female
  Weight: 50 kg

DRUGS (4)
  1. HUMIRA [Suspect]
     Indication: CROHN^S DISEASE
     Route: 058
     Dates: start: 20130108, end: 201401
  2. HUMIRA [Suspect]
     Dates: start: 201402
  3. AZATHIOPRINE [Concomitant]
     Indication: CROHN^S DISEASE
     Dates: end: 2013
  4. BUDESONID [Concomitant]
     Indication: CROHN^S DISEASE

REACTIONS (2)
  - Anastomotic stenosis [Recovered/Resolved]
  - Abdominal lymphadenopathy [Unknown]
